FAERS Safety Report 26006127 (Version 1)
Quarter: 2025Q4

REPORT INFORMATION
  Report Type: Spontaneous
  Country: EU (occurrence: EU)
  Receive Date: 20251106
  Receipt Date: 20251106
  Transmission Date: 20260117
  Serious: Yes (Disabling)
  Sender: TEVA
  Company Number: None

PATIENT
  Age: 24 Year
  Sex: Female

DRUGS (1)
  1. ISOTRETINOIN [Suspect]
     Active Substance: ISOTRETINOIN
     Indication: Acne
     Dosage: STRENGTH: UNKNOWN.?DOSAGE: 20 MG ONCE DAILY BUT FROM 17FEB2020 TO APRIL 2020 DOSAGE WAS INCREASED...
     Route: 065
     Dates: start: 20200109

REACTIONS (2)
  - Sacroiliitis [Not Recovered/Not Resolved]
  - Dyspnoea [Unknown]

NARRATIVE: CASE EVENT DATE: 20200101
